FAERS Safety Report 20718389 (Version 1)
Quarter: 2022Q2

REPORT INFORMATION
  Report Type: Spontaneous
  Country: US (occurrence: US)
  Receive Date: 20220418
  Receipt Date: 20220418
  Transmission Date: 20220720
  Serious: No
  Sender: FDA-Public Use
  Company Number: US-JNJFOC-20220414838

PATIENT

DRUGS (1)
  1. ROGAINE [Suspect]
     Active Substance: MINOXIDIL
     Indication: Product used for unknown indication
     Dosage: DOSE: MORE THAN A CAP
     Route: 065

REACTIONS (4)
  - Vertigo [Unknown]
  - Head discomfort [Unknown]
  - Overdose [Unknown]
  - Product container issue [Unknown]
